FAERS Safety Report 7382065-0 (Version None)
Quarter: 2011Q1

REPORT INFORMATION
  Report Type: 
  Country: None (occurrence: None)
  Receive Date: 20110329
  Receipt Date: 20110316
  Transmission Date: 20110831
  Serious: Yes (Hospitalization, Other)
  Sender: FDA-Public Use
  Company Number: US-ELI_LILLY_AND_COMPANY-US201103005453

PATIENT
  Sex: Female

DRUGS (13)
  1. AMLODIPINE BESYLATE [Concomitant]
     Dosage: 10 MG, UNK
  2. LOVAZA [Concomitant]
     Dosage: 1000 DF, UNK
  3. CALCIUM [Concomitant]
     Dosage: 1200 MG, UNK
  4. OMEPRAZOLE [Concomitant]
     Dosage: 20 MG, UNK
  5. IRON [Concomitant]
     Dosage: 27 MG, UNK
  6. VITAMIN B-12 [Concomitant]
     Dosage: 1000 MG, UNK
  7. DOVAN [Concomitant]
  8. METOPROLOL TARTRATE [Concomitant]
     Dosage: 50 MG, UNK
  9. CYMBALTA [Concomitant]
     Dosage: 60 MG, UNK
  10. VITAMIN D [Concomitant]
     Dosage: 1000 U, UNK
  11. FORTEO [Suspect]
     Indication: OSTEOPOROSIS
     Dosage: 20 UG, QD
  12. FUROSEMIDE [Concomitant]
     Dosage: 20 MG, UNK
  13. ZOCOR [Concomitant]

REACTIONS (4)
  - PLEURAL EFFUSION [None]
  - PRODUCTIVE COUGH [None]
  - PERICARDIAL EFFUSION [None]
  - FEELING ABNORMAL [None]
